FAERS Safety Report 26109730 (Version 1)
Quarter: 2025Q4

REPORT INFORMATION
  Report Type: Spontaneous
  Country: US (occurrence: US)
  Receive Date: 20251201
  Receipt Date: 20251201
  Transmission Date: 20260118
  Serious: Yes (Hospitalization, Disabling, Other)
  Sender: NOVO NORDISK
  Company Number: US-NOVOPROD-1573501

PATIENT
  Age: 63 Year
  Sex: Female

DRUGS (2)
  1. OZEMPIC [Suspect]
     Active Substance: SEMAGLUTIDE
     Indication: Type 2 diabetes mellitus
     Dosage: 1 MG, QW
     Route: 058
     Dates: start: 2023
  2. REPATHA [Suspect]
     Active Substance: EVOLOCUMAB
     Indication: Blood cholesterol
     Dosage: UNK

REACTIONS (12)
  - Urosepsis [Recovered/Resolved]
  - Fall [Not Recovered/Not Resolved]
  - Head injury [Unknown]
  - Craniofacial fracture [Unknown]
  - Contusion [Unknown]
  - Blister [Not Recovered/Not Resolved]
  - Neuropathy peripheral [Unknown]
  - Impaired work ability [Not Recovered/Not Resolved]
  - Rotator cuff syndrome [Unknown]
  - Weight decreased [Unknown]
  - Hypoaesthesia [Unknown]
  - Back pain [Not Recovered/Not Resolved]

NARRATIVE: CASE EVENT DATE: 20230101
